FAERS Safety Report 14016846 (Version 1)
Quarter: 2017Q3

REPORT INFORMATION
  Report Type: Spontaneous
  Country: CA (occurrence: CA)
  Receive Date: 20170927
  Receipt Date: 20170927
  Transmission Date: 20171128
  Serious: Yes (Other)
  Sender: FDA-Public Use
  Company Number: CA-009507513-0712USA08050

PATIENT
  Age: 37 Year
  Sex: Male

DRUGS (8)
  1. MK-3009 [Suspect]
     Active Substance: DAPTOMYCIN
     Dosage: 12 MG/KG, QD
     Route: 042
     Dates: start: 20070906, end: 20070915
  2. CEFEPIME [Concomitant]
     Active Substance: CEFEPIME HYDROCHLORIDE
     Dates: start: 20070828, end: 20070910
  3. RIFAMPIN. [Concomitant]
     Active Substance: RIFAMPIN
     Dates: start: 20070719, end: 20070722
  4. VANCOMYCIN [Concomitant]
     Active Substance: VANCOMYCIN
     Dates: start: 20070710, end: 20070907
  5. MK-3009 [Suspect]
     Active Substance: DAPTOMYCIN
     Indication: ENDOCARDITIS STAPHYLOCOCCAL
     Dosage: 6 MG/KG, QD
     Route: 042
     Dates: start: 20070831, end: 20070905
  6. LINEZOLID. [Concomitant]
     Active Substance: LINEZOLID
     Dates: start: 20070722, end: 20070828
  7. GENTAMICIN. [Concomitant]
     Active Substance: GENTAMICIN
     Dates: start: 20070910, end: 20070916
  8. TIGECYCLINE. [Concomitant]
     Active Substance: TIGECYCLINE
     Dates: start: 20070722, end: 20070726

REACTIONS (3)
  - Antimicrobial susceptibility test resistant [Recovered/Resolved]
  - Bacteraemia [Recovered/Resolved]
  - Drug ineffective [Recovered/Resolved]

NARRATIVE: CASE EVENT DATE: 200709
